FAERS Safety Report 9813127 (Version 1)
Quarter: 2014Q1

REPORT INFORMATION
  Report Type: Spontaneous
  Country: TT (occurrence: None)
  Receive Date: 20140109
  Receipt Date: 20140109
  Transmission Date: 20141002
  Serious: Yes (Other)
  Sender: FDA-Public Use
  Company Number: 2014P1000033

PATIENT
  Age: 26 Year
  Sex: Female

DRUGS (2)
  1. METHYLPREDNISOLONE [Suspect]
     Indication: TENOSYNOVITIS STENOSANS
  2. LIDOCAINE [Concomitant]

REACTIONS (2)
  - Suppressed lactation [None]
  - Exposure during breast feeding [None]
